FAERS Safety Report 20077693 (Version 1)
Quarter: 2021Q4

REPORT INFORMATION
  Report Type: Report from Study
  Country: FR (occurrence: FR)
  Receive Date: 20211116
  Receipt Date: 20211116
  Transmission Date: 20220303
  Serious: Yes (Hospitalization, Other)
  Sender: FDA-Public Use
  Company Number: FR-TAKEDA-2021TUS070746

PATIENT
  Age: 68 Year
  Sex: Female

DRUGS (8)
  1. TEDUGLUTIDE [Suspect]
     Active Substance: TEDUGLUTIDE
     Indication: Short-bowel syndrome
     Dosage: 2.2 MILLIGRAM, QD
     Route: 065
     Dates: start: 20160611
  2. TEDUGLUTIDE [Suspect]
     Active Substance: TEDUGLUTIDE
     Indication: Short-bowel syndrome
     Dosage: 2.2 MILLIGRAM, QD
     Route: 065
     Dates: start: 20160611
  3. TEDUGLUTIDE [Suspect]
     Active Substance: TEDUGLUTIDE
     Indication: Short-bowel syndrome
     Dosage: 2.2 MILLIGRAM, QD
     Route: 065
     Dates: start: 20160611
  4. TEDUGLUTIDE [Suspect]
     Active Substance: TEDUGLUTIDE
     Indication: Short-bowel syndrome
     Dosage: 2.2 MILLIGRAM, QD
     Route: 065
     Dates: start: 20160611
  5. OFLOXACIN [Concomitant]
     Active Substance: OFLOXACIN
     Indication: Vascular device infection
     Dosage: 200 MILLIGRAM, BID
     Route: 048
     Dates: start: 20200904, end: 20200910
  6. AMIKACIN SULFATE [Concomitant]
     Active Substance: AMIKACIN SULFATE
     Indication: Dyspepsia
     Dosage: 1 DOSAGE FORM
     Route: 050
     Dates: start: 20200113, end: 20200210
  7. VANCOMYCIN [Concomitant]
     Active Substance: VANCOMYCIN
     Indication: Dyspepsia
     Dosage: 1 DOSAGE FORM, QD
     Route: 042
     Dates: start: 20200113, end: 20200113
  8. PIPERACILLIN SODIUM\TAZOBACTAM SODIUM [Concomitant]
     Active Substance: PIPERACILLIN SODIUM\TAZOBACTAM SODIUM
     Indication: Dyspepsia
     Dosage: 1 DOSAGE FORM, QD
     Route: 042
     Dates: start: 20200113, end: 20200117

REACTIONS (2)
  - Vascular device infection [Recovered/Resolved]
  - Device occlusion [Recovered/Resolved]

NARRATIVE: CASE EVENT DATE: 20200801
